FAERS Safety Report 4949913-2 (Version None)
Quarter: 2006Q1

REPORT INFORMATION
  Report Type: 
  Country: None (occurrence: None)
  Receive Date: 20060315
  Receipt Date: 20060301
  Transmission Date: 20060701
  Serious: Yes (Hospitalization)
  Sender: FDA-Public Use
  Company Number: 222680

PATIENT
  Age: 69 Year
  Sex: Female

DRUGS (9)
  1. AVASTIN [Suspect]
     Indication: COLORECTAL CANCER METASTATIC
     Dosage: 5 MG/KG, INTRAVENOUS
     Route: 042
     Dates: start: 20051018, end: 20051213
  2. OXALIPLATIN (OXALIPLATIN) [Suspect]
     Indication: COLORECTAL CANCER METASTATIC
     Dosage: 85 MG/M2, INTRAVENOUS
     Route: 042
     Dates: start: 20051018, end: 20051213
  3. CETUXIMAB (CETUXIMAB) [Suspect]
     Indication: COLORECTAL CANCER METASTATIC
     Dosage: 250 MG/M2, INTRAVENOUS
     Route: 042
     Dates: start: 20051018, end: 20051213
  4. LEUCOVORIN CALCIUM [Suspect]
     Indication: COLORECTAL CANCER METASTATIC
     Dosage: 350 MG, INTRAVENOUS
     Route: 042
     Dates: start: 20051018, end: 20051213
  5. FLUOROURACIL [Suspect]
     Indication: COLORECTAL CANCER METASTATIC
     Dosage: SEE IMAGE
     Route: 040
     Dates: start: 20051018, end: 20051215
  6. FLUOROURACIL [Suspect]
     Indication: COLORECTAL CANCER METASTATIC
     Dosage: SEE IMAGE
     Route: 040
     Dates: start: 20051213
  7. MEGESTROL ACETATE [Concomitant]
  8. PANTOPRAZOLE [Concomitant]
  9. POTASSIUM CHLORIDE [Concomitant]

REACTIONS (11)
  - ASTHENIA [None]
  - BLOOD CALCIUM DECREASED [None]
  - BLOOD POTASSIUM DECREASED [None]
  - DEHYDRATION [None]
  - FATIGUE [None]
  - HAEMATOCRIT DECREASED [None]
  - HAEMOGLOBIN DECREASED [None]
  - NAUSEA [None]
  - VOMITING [None]
  - WEIGHT DECREASED [None]
  - WHITE BLOOD CELL COUNT DECREASED [None]
